FAERS Safety Report 7316096-3 (Version None)
Quarter: 2011Q1

REPORT INFORMATION
  Report Type: 
  Country: None (occurrence: None)
  Receive Date: 20110225
  Receipt Date: 20110216
  Transmission Date: 20110831
  Serious: Yes (Hospitalization)
  Sender: FDA-Public Use
  Company Number: CZ-ELI_LILLY_AND_COMPANY-CZ201102005526

PATIENT
  Age: 62 Year
  Sex: Male

DRUGS (4)
  1. GLIMEPIRIDE [Concomitant]
  2. METFORMINE [Concomitant]
     Dosage: UNK, UNK
     Route: 048
  3. BYETTA [Suspect]
     Dosage: 10 UG, 2/D
     Route: 058
     Dates: start: 20100501, end: 20101006
  4. BYETTA [Suspect]
     Indication: TYPE 2 DIABETES MELLITUS
     Dosage: 5 UG, 2/D
     Route: 058
     Dates: start: 20100409

REACTIONS (5)
  - WEIGHT DECREASED [None]
  - DECREASED APPETITE [None]
  - RENAL FAILURE [None]
  - GASTRITIS [None]
  - HYPOPHAGIA [None]
